FAERS Safety Report 6509761-9 (Version None)
Quarter: 2009Q4

REPORT INFORMATION
  Report Type: 
  Country: None (occurrence: None)
  Receive Date: 20091222
  Receipt Date: 20091215
  Transmission Date: 20100525
  Serious: Yes (Hospitalization)
  Sender: FDA-Public Use
  Company Number: CA-ASTRAZENECA-2009SE32470

PATIENT
  Age: 15 Year
  Sex: Female

DRUGS (5)
  1. SEROQUEL XR [Suspect]
     Indication: SCHIZOPHRENIA
     Route: 048
  2. SEROQUEL XR [Suspect]
     Route: 048
  3. PAXIL [Concomitant]
  4. CLONAZEPAM [Concomitant]
     Dosage: 0.5, AS NEEDED
  5. BIRTH CONTROL PILLS [Concomitant]

REACTIONS (1)
  - HALLUCINATION [None]
